FAERS Safety Report 10166801 (Version 1)
Quarter: 2014Q2

REPORT INFORMATION
  Report Type: Spontaneous
  Country: FR (occurrence: FR)
  Receive Date: 20140512
  Receipt Date: 20140512
  Transmission Date: 20141212
  Serious: Yes (Other)
  Sender: FDA-Public Use
  Company Number: FR-009507513-1405FRA003749

PATIENT
  Age: 66 Year
  Sex: Male

DRUGS (2)
  1. JANUVIA [Suspect]
     Indication: TYPE 2 DIABETES MELLITUS
     Dosage: 100 MG, QD
     Route: 048
     Dates: start: 20120829, end: 20140126
  2. STAGID [Concomitant]
     Indication: TYPE 2 DIABETES MELLITUS
     Dosage: 700 MG, QD
     Route: 048
     Dates: start: 20120504

REACTIONS (1)
  - Pancreatic enzymes increased [Recovering/Resolving]
